FAERS Safety Report 6371523-3 (Version None)
Quarter: 2009Q3

REPORT INFORMATION
  Report Type: 
  Country: None (occurrence: None)
  Receive Date: 20090923
  Receipt Date: 20071128
  Transmission Date: 20100115
  Serious: No
  Sender: FDA-Public Use
  Company Number: US-ASTRAZENECA-2007UW19275

PATIENT
  Age: 38 Year
  Sex: Female

DRUGS (27)
  1. SEROQUEL [Suspect]
     Indication: SLEEP DISORDER
     Route: 048
     Dates: start: 20001201, end: 20050408
  2. SEROQUEL [Suspect]
     Dosage: 200-300 MG
     Route: 048
     Dates: start: 20030826
  3. FAMOTIDINE [Concomitant]
     Route: 048
  4. PRILOSEC [Concomitant]
     Route: 048
  5. LAMICTAL [Concomitant]
     Route: 048
  6. HYDROXYZINE PAMOATE [Concomitant]
     Route: 048
  7. RISPERDAL [Concomitant]
     Route: 048
  8. ALPRAZOLAM [Concomitant]
     Route: 048
  9. TOPAMAX [Concomitant]
     Dosage: 100-200 MG
     Route: 048
  10. DEPAKOTE [Concomitant]
     Dosage: 250-300 MG
     Route: 048
  11. CARBAMAZEPINE [Concomitant]
     Route: 048
  12. NAPROXEN [Concomitant]
     Route: 048
  13. PROPOXYPHENE-N [Concomitant]
     Route: 048
  14. BENZONATATE [Concomitant]
     Route: 048
  15. LEXAPRO [Concomitant]
     Route: 048
  16. NICOTINE [Concomitant]
     Dosage: 14-21 MG
     Route: 048
  17. GEODONE [Concomitant]
     Route: 048
  18. ACETAMINOPHEN [Concomitant]
     Route: 065
  19. TRAZODONE HCL [Concomitant]
     Route: 048
  20. CLONAZEPAM [Concomitant]
     Route: 048
  21. TRAMADOL HCL [Concomitant]
     Route: 048
  22. CLINDAMYCIN HCL [Concomitant]
     Route: 048
  23. PREDNISONE [Concomitant]
     Route: 048
  24. GABAPENTIN [Concomitant]
     Route: 048
  25. RANITIDINE [Concomitant]
     Route: 048
  26. FUROSEMIDE [Concomitant]
     Route: 048
  27. CYCLOBENZAPRINE [Concomitant]
     Route: 048

REACTIONS (1)
  - DIABETES MELLITUS [None]
